FAERS Safety Report 24232307 (Version 2)
Quarter: 2024Q3

REPORT INFORMATION
  Report Type: Report from Study
  Country: US (occurrence: US)
  Receive Date: 20240821
  Receipt Date: 20240830
  Transmission Date: 20241017
  Serious: Yes (Other)
  Sender: BAYER
  Company Number: US-BAYER-2024A112073

PATIENT

DRUGS (2)
  1. GADAVIST [Suspect]
     Active Substance: GADOBUTROL
     Dosage: UNK UNK, ONCE
  2. DOTAREM [Suspect]
     Active Substance: GADOTERATE MEGLUMINE
     Dosage: UNK

REACTIONS (1)
  - Gadolinium deposition disease [Recovering/Resolving]
